FAERS Safety Report 8757278 (Version 1)
Quarter: 2012Q4

REPORT INFORMATION
  Report Type: 
  Country: US (occurrence: US)
  Receive Date: 20120828
  Receipt Date: 20120828
  Transmission Date: 20130627
  Serious: Yes (Hospitalization)
  Sender: FDA-Public Use
  Company Number: US-VERTEX PHARMACEUTICAL INC.-2012-019686

PATIENT
  Sex: Male

DRUGS (7)
  1. INCIVEK [Suspect]
     Indication: HEPATITIS C
     Dosage: 750 mg, tid
     Route: 048
     Dates: start: 20120413, end: 20120702
  2. RIBAPAK [Concomitant]
     Indication: HEPATITIS C
     Dosage: UNK UNK, bid
     Dates: start: 20120413, end: 20120625
  3. RIBAPAK [Concomitant]
     Dosage: 600 mg, qd
     Dates: start: 20120625, end: 20120702
  4. PEGASYS [Concomitant]
     Indication: HEPATITIS C
     Dosage: 180 mcg per week
     Route: 058
     Dates: start: 20120413, end: 20120702
  5. PREVACID [Concomitant]
     Dosage: 30 mg, qd
     Route: 048
  6. NEXIUM                             /01479302/ [Concomitant]
     Dosage: 40 mg, qd
     Route: 048
  7. LOSARTAN [Concomitant]
     Dosage: 100 mg, qd
     Route: 048

REACTIONS (9)
  - Cerebrovascular accident [Unknown]
  - Depression [Unknown]
  - Irritability [Unknown]
  - Muscular weakness [Unknown]
  - Malaise [Unknown]
  - Fatigue [Unknown]
  - Rash [Unknown]
  - Anaemia [Unknown]
  - Pruritus [Unknown]
